FAERS Safety Report 14825755 (Version 1)
Quarter: 2018Q2

REPORT INFORMATION
  Report Type: Spontaneous
  Country: US (occurrence: US)
  Receive Date: 20180417
  Receipt Date: 20180417
  Transmission Date: 20180711
  Serious: No
  Sender: FDA-Public Use
  Company Number: None

PATIENT
  Age: 69 Year
  Sex: Female

DRUGS (1)
  1. TRACLEER [Suspect]
     Active Substance: BOSENTAN
     Indication: PULMONARY ARTERIAL HYPERTENSION
     Route: 048
     Dates: start: 20140905

REACTIONS (4)
  - Incision site complication [None]
  - Seroma [None]
  - Post procedural discharge [None]
  - Musculoskeletal discomfort [None]

NARRATIVE: CASE EVENT DATE: 20180413
